FAERS Safety Report 6232206-3 (Version None)
Quarter: 2009Q2

REPORT INFORMATION
  Report Type: 
  Country: None (occurrence: None)
  Receive Date: 20090615
  Receipt Date: 20090615
  Transmission Date: 20091009
  Serious: No
  Sender: FDA-Public Use
  Company Number: None

PATIENT
  Sex: Male
  Weight: 86.637 kg

DRUGS (1)
  1. MYCOPHENOLATE MOFETIL [Suspect]
     Dosage: DID NOT USE

REACTIONS (2)
  - MEDICATION ERROR [None]
  - PRODUCT COLOUR ISSUE [None]
